FAERS Safety Report 18670005 (Version 2)
Quarter: 2021Q3

REPORT INFORMATION
  Report Type: Spontaneous
  Country: JP (occurrence: JP)
  Receive Date: 20201228
  Receipt Date: 20210917
  Transmission Date: 20211014
  Serious: Yes (Other)
  Sender: FDA-Public Use
  Company Number: JP-ELI_LILLY_AND_COMPANY-JP202012012154

PATIENT
  Age: 51 Year
  Sex: Male

DRUGS (3)
  1. GEMCITABINE. [Concomitant]
     Active Substance: GEMCITABINE
     Indication: PRODUCT USED FOR UNKNOWN INDICATION
     Dosage: 1550 MG/KG, UNKNOWN
     Route: 065
     Dates: start: 20201210, end: 20201210
  2. NECITUMUMAB [Suspect]
     Active Substance: NECITUMUMAB
     Indication: SQUAMOUS CELL CARCINOMA OF LUNG
     Dosage: 800 MG, DAILY
     Route: 041
     Dates: start: 20201210, end: 20201210
  3. CISPLATIN. [Concomitant]
     Active Substance: CISPLATIN
     Indication: PRODUCT USED FOR UNKNOWN INDICATION
     Dosage: 90 MG/KG, UNKNOWN
     Route: 065
     Dates: start: 20201210, end: 20201210

REACTIONS (1)
  - Rash [Recovering/Resolving]

NARRATIVE: CASE EVENT DATE: 20201215
